FAERS Safety Report 6138201-7 (Version None)
Quarter: 2009Q1

REPORT INFORMATION
  Report Type: 
  Country: None (occurrence: None)
  Receive Date: 20090331
  Receipt Date: 20090324
  Transmission Date: 20090719
  Serious: Yes (Hospitalization)
  Sender: FDA-Public Use
  Company Number: A0728840A

PATIENT
  Age: 44 Year
  Sex: Female
  Weight: 100 kg

DRUGS (7)
  1. AVANDIA [Suspect]
     Route: 048
     Dates: start: 20020604, end: 20020901
  2. ZOCOR [Concomitant]
     Dosage: 20MG PER DAY
     Route: 048
  3. GLUCOPHAGE [Concomitant]
     Dosage: 2G PER DAY
     Route: 048
  4. INSULIN [Concomitant]
     Dosage: 20UNIT TWICE PER DAY
     Route: 058
  5. LANTUS [Concomitant]
     Dosage: 20UNIT AT NIGHT
     Route: 058
  6. ZESTRIL [Concomitant]
  7. ZANTAC [Concomitant]

REACTIONS (2)
  - CARDIAC ARREST [None]
  - MYOCARDIAL INFARCTION [None]
